FAERS Safety Report 9949333 (Version 3)
Quarter: 2015Q1

REPORT INFORMATION
  Report Type: Spontaneous
  Country: US (occurrence: None)
  Receive Date: 20140122
  Receipt Date: 20150130
  Transmission Date: 20150721
  Serious: Yes (Other)
  Sender: FDA-Public Use
  Company Number: AEGR000239

PATIENT
  Age: 57 Year
  Sex: Female
  Weight: 58.5 kg

DRUGS (17)
  1. CRESTOR [Concomitant]
     Active Substance: ROSUVASTATIN CALCIUM
  2. OXYCODONE HCL (OXYCODONE HYDROCHLORIDE) [Concomitant]
     Active Substance: OXYCODONE HYDROCHLORIDE
  3. TORSEMIDE (TORASEMIDE) [Concomitant]
  4. ZOFRAN (ONDANSETRON HYDROCHLORIDE) [Concomitant]
  5. JUXTAPID [Suspect]
     Active Substance: LOMITAPIDE MESYLATE
     Indication: TYPE IIA HYPERLIPIDAEMIA
     Route: 048
     Dates: start: 20131201, end: 20131223
  6. PROAIR HFA [Concomitant]
     Active Substance: ALBUTEROL SULFATE
  7. ADVAIR DISKUS [Concomitant]
     Active Substance: FLUTICASONE PROPIONATE\SALMETEROL XINAFOATE
  8. ZETIA [Concomitant]
     Active Substance: EZETIMIBE
  9. FENTANYL. [Concomitant]
     Active Substance: FENTANYL
  10. BACTRIM [Concomitant]
     Active Substance: SULFAMETHOXAZOLE\TRIMETHOPRIM
  11. VITAMIN D (COLECALCIFEROL) [Concomitant]
  12. VITAMIN D2 (ERGOCALCIFEROL) [Concomitant]
  13. CARAFATE (SUCRALFATE) [Concomitant]
  14. NITROSTAT (GLYCERYL TRINITRATE) [Concomitant]
  15. ALTACE (RAMIPRIL) [Concomitant]
  16. CARVEDILOL. [Concomitant]
     Active Substance: CARVEDILOL
  17. DEXILANT [Concomitant]
     Active Substance: DEXLANSOPRAZOLE

REACTIONS (4)
  - Gastrointestinal disorder [None]
  - Abdominal pain [None]
  - Myalgia [None]
  - Diarrhoea [None]

NARRATIVE: CASE EVENT DATE: 20131204
